FAERS Safety Report 14388395 (Version 2)
Quarter: 2018Q4

REPORT INFORMATION
  Report Type: Spontaneous
  Country: US (occurrence: US)
  Receive Date: 20180115
  Receipt Date: 20181128
  Transmission Date: 20190204
  Serious: Yes (Other)
  Sender: FDA-Public Use
  Company Number: US-SA-2017SA204083

PATIENT
  Age: 65 Year
  Sex: Female
  Weight: 95 kg

DRUGS (11)
  1. HYDROCHLOROTHIAZIDE. [Concomitant]
     Active Substance: HYDROCHLOROTHIAZIDE
  2. BENAZEPRIL HYDROCHLORIDE. [Concomitant]
     Active Substance: BENAZEPRIL HYDROCHLORIDE
     Dosage: UNK
  3. TAXOTERE [Suspect]
     Active Substance: DOCETAXEL
     Dosage: 152 MG,Q3W
     Route: 042
     Dates: start: 20120117, end: 20120117
  4. HERCEPTIN [Concomitant]
     Active Substance: TRASTUZUMAB
  5. ANZEMET [Concomitant]
     Active Substance: DOLASETRON MESYLATE
  6. TAXOTERE [Suspect]
     Active Substance: DOCETAXEL
     Indication: BREAST CANCER FEMALE
     Dosage: 152 MG,Q3W
     Route: 042
     Dates: start: 20111004, end: 20111004
  7. DEXAMETHASONE. [Concomitant]
     Active Substance: DEXAMETHASONE
  8. TAXOL [Concomitant]
     Active Substance: PACLITAXEL
  9. PARAPLATIN [Concomitant]
     Active Substance: CARBOPLATIN
  10. PARACETAMOL [Concomitant]
     Active Substance: ACETAMINOPHEN
  11. CARBOPLATIN. [Concomitant]
     Active Substance: CARBOPLATIN

REACTIONS (2)
  - Psychological trauma [Unknown]
  - Alopecia [Recovering/Resolving]

NARRATIVE: CASE EVENT DATE: 201207
